FAERS Safety Report 4483926-2 (Version None)
Quarter: 2004Q4

REPORT INFORMATION
  Report Type: 
  Country: None (occurrence: None)
  Receive Date: 20041025
  Receipt Date: 20041006
  Transmission Date: 20050328
  Serious: Yes (Hospitalization)
  Sender: FDA-Public Use
  Company Number: PHBS2004JP13257

PATIENT
  Age: 80 Year
  Sex: Male

DRUGS (3)
  1. CYCLOSPORINE [Suspect]
     Indication: APLASTIC ANAEMIA
     Route: 065
  2. ATGAM [Suspect]
     Indication: APLASTIC ANAEMIA
     Route: 065
     Dates: start: 20030401
  3. NEUPOGEN [Concomitant]
     Indication: APLASTIC ANAEMIA

REACTIONS (7)
  - ANAEMIA [None]
  - APLASTIC ANAEMIA [None]
  - DISEASE PROGRESSION [None]
  - ERYTHEMA [None]
  - HEPATIC FUNCTION ABNORMAL [None]
  - HYPERSENSITIVITY [None]
  - NEUTROPHIL COUNT DECREASED [None]
